FAERS Safety Report 22011703 (Version 4)
Quarter: 2023Q4

REPORT INFORMATION
  Report Type: Spontaneous
  Country: US (occurrence: US)
  Receive Date: 20230220
  Receipt Date: 20231207
  Transmission Date: 20240109
  Serious: Yes (Hospitalization)
  Sender: FDA-Public Use
  Company Number: US-PFIZER INC-202200119742

PATIENT
  Age: 70 Year
  Sex: Male

DRUGS (1)
  1. XELJANZ [Suspect]
     Active Substance: TOFACITINIB CITRATE
     Dosage: 5 MG

REACTIONS (6)
  - Bacterial infection [Unknown]
  - Pyrexia [Unknown]
  - Product name confusion [Unknown]
  - Product prescribing issue [Unknown]
  - Prescription drug used without a prescription [Unknown]
  - Illness [Unknown]
